FAERS Safety Report 20111454 (Version 1)
Quarter: 2021Q4

REPORT INFORMATION
  Report Type: Spontaneous
  Country: US (occurrence: US)
  Receive Date: 20211125
  Receipt Date: 20211125
  Transmission Date: 20220303
  Serious: No
  Sender: FDA-Public Use
  Company Number: MIQ-03302021-3383

PATIENT

DRUGS (3)
  1. IVERMECTIN [Suspect]
     Active Substance: IVERMECTIN
     Indication: Lice infestation
     Dosage: 6 TABLETS
     Route: 048
  2. IVERMECTIN [Suspect]
     Active Substance: IVERMECTIN
     Dosage: 6 TABLETS
     Route: 048
  3. IVERMECTIN [Suspect]
     Active Substance: IVERMECTIN
     Dosage: 7 TABLETS AFTER 8-9 DAYS
     Route: 048

REACTIONS (2)
  - Product use in unapproved indication [Unknown]
  - Drug ineffective for unapproved indication [Unknown]
